FAERS Safety Report 19407074 (Version 1)
Quarter: 2021Q2

REPORT INFORMATION
  Report Type: Spontaneous
  Country: US (occurrence: US)
  Receive Date: 20210611
  Receipt Date: 20210611
  Transmission Date: 20210717
  Serious: No
  Sender: FDA-Public Use
  Company Number: US-GALDERMA-US2021009375

PATIENT
  Sex: Female

DRUGS (1)
  1. METRONIDAZOLE CREAM (METRONIDAZOLE) 0.75% [Suspect]
     Active Substance: METRONIDAZOLE
     Indication: ROSACEA
     Dosage: 0.75%
     Route: 061

REACTIONS (5)
  - Intentional underdose [Recovered/Resolved]
  - Drug ineffective [Unknown]
  - Intentional product misuse [Recovered/Resolved]
  - Product physical consistency issue [Recovered/Resolved]
  - Poor quality product administered [Recovered/Resolved]
